FAERS Safety Report 4927505-9 (Version None)
Quarter: 2006Q1

REPORT INFORMATION
  Report Type: 
  Country: None (occurrence: None)
  Receive Date: 20060228
  Receipt Date: 20050914
  Transmission Date: 20060701
  Serious: Yes (Hospitalization)
  Sender: FDA-Public Use
  Company Number: US-MERCK-0509USA01982

PATIENT
  Age: 57 Year
  Sex: Female
  Weight: 64 kg

DRUGS (1)
  1. VIOXX [Suspect]
     Indication: ARTHRITIS
     Route: 048
     Dates: start: 19980101, end: 20020101

REACTIONS (18)
  - ARTHRALGIA [None]
  - BACK PAIN [None]
  - BLOOD PRESSURE INCREASED [None]
  - CEREBRAL INFARCTION [None]
  - CEREBROVASCULAR ACCIDENT [None]
  - DIZZINESS [None]
  - EMOTIONAL DISTRESS [None]
  - FACIAL PAIN [None]
  - FALL [None]
  - HEADACHE [None]
  - HYPERTENSION [None]
  - MITRAL VALVE DISEASE [None]
  - NERVE COMPRESSION [None]
  - NEUROPATHY [None]
  - PARAESTHESIA [None]
  - PARESIS [None]
  - PERONEAL NERVE INJURY [None]
  - SWELLING FACE [None]
